FAERS Safety Report 21029463 (Version 1)
Quarter: 2022Q2

REPORT INFORMATION
  Report Type: Spontaneous
  Country: CN (occurrence: CN)
  Receive Date: 20220630
  Receipt Date: 20220630
  Transmission Date: 20220721
  Serious: Yes (Hospitalization, Other)
  Sender: FDA-Public Use
  Company Number: CN-TAKEDA-2022TUS042987

PATIENT

DRUGS (5)
  1. ANAGRELIDE [Suspect]
     Active Substance: ANAGRELIDE
     Indication: Essential thrombocythaemia
     Dosage: 1 MILLIGRAM, QD
     Route: 048
     Dates: start: 20210802, end: 20210928
  2. ANAGRELIDE [Suspect]
     Active Substance: ANAGRELIDE
     Dosage: 1 MILLIGRAM, QD
     Route: 048
     Dates: start: 20210803, end: 20211104
  3. ANAGRELIDE [Suspect]
     Active Substance: ANAGRELIDE
     Dosage: 1.5 MILLIGRAM, TID
     Route: 048
     Dates: start: 20210929, end: 20220426
  4. ANAGRELIDE [Suspect]
     Active Substance: ANAGRELIDE
     Dosage: 2 MILLIGRAM, QID
     Route: 048
     Dates: start: 20220427, end: 20220605
  5. ANAGRELIDE [Suspect]
     Active Substance: ANAGRELIDE
     Dosage: 2 MILLIGRAM, QID
     Route: 048
     Dates: start: 20220614

REACTIONS (1)
  - Acute myocardial infarction [Not Recovered/Not Resolved]

NARRATIVE: CASE EVENT DATE: 20220606
